FAERS Safety Report 8200546-4 (Version None)
Quarter: 2012Q1

REPORT INFORMATION
  Report Type: 
  Country: None (occurrence: None)
  Receive Date: 20120306
  Receipt Date: 20120222
  Transmission Date: 20120608
  Serious: Yes (Hospitalization, Disabling)
  Sender: FDA-Public Use
  Company Number: 2011HGS-002731

PATIENT
  Age: 49 Year
  Sex: Female
  Weight: 101.1521 kg

DRUGS (15)
  1. PROTONIX [Concomitant]
  2. RANITIDINE HCL (RANITIDINE HYDROCHLORIDE) (RANITIDINE HYDROCHLORIDE) [Concomitant]
  3. METHOTREXATE [Concomitant]
  4. REMERON [Concomitant]
  5. RESTORIL (TEMAZEPAM) (TEMAZEPAM) [Concomitant]
  6. ZOFRAN (ONDANSETRON HYDROCHLORIDE) (ONDANSETRON HYDROCHLORIDE) [Concomitant]
  7. PLAQUENIL [Concomitant]
  8. SYNTHROID (LEVOTHYROXINE SODIUM) (LEVOTHYROXINE SODIUM) [Concomitant]
  9. FUROSEMIDE [Concomitant]
  10. FOLIC ACID [Concomitant]
  11. LEUCOVORIN (FOLINIC ACID) (FOLINIC ACID) [Concomitant]
  12. VESICARE ((URINARY ANTISPASMOCIS) (SOLIFENACIN SUCCINATE) [Concomitant]
  13. PREDNISONE [Concomitant]
  14. BENLYSTA [Suspect]
     Indication: SYSTEMIC LUPUS ERYTHEMATOSUS
     Dosage: 1000 MG, 1 IN 14 D, INTRAVENOUS DRIP
     Route: 041
     Dates: start: 20110915, end: 20110915
  15. CELEXA (CITALOPRAM OXALATE) (CITALOPRAM OXALATE) [Concomitant]

REACTIONS (2)
  - THROMBOTIC STROKE [None]
  - THALAMIC INFARCTION [None]
